FAERS Safety Report 14099607 (Version 28)
Quarter: 2025Q4

REPORT INFORMATION
  Report Type: Report from Study
  Country: CA (occurrence: CA)
  Receive Date: 20171017
  Receipt Date: 20251117
  Transmission Date: 20260118
  Serious: Yes (Life-Threatening, Hospitalization, Other)
  Sender: NOVARTIS
  Company Number: PHHY2017CA134563

PATIENT
  Sex: Male

DRUGS (9)
  1. SANDOSTATIN LAR DEPOT [Suspect]
     Active Substance: OCTREOTIDE ACETATE
     Indication: Gastrinoma malignant
     Dosage: 30 MG, Q4W (4 WEEKS)
     Route: 030
     Dates: start: 20170614, end: 20241030
  2. SANDOSTATIN LAR DEPOT [Suspect]
     Active Substance: OCTREOTIDE ACETATE
     Dosage: 30 MG, Q4W
     Route: 030
     Dates: start: 20250306
  3. SANDOSTATIN LAR DEPOT [Suspect]
     Active Substance: OCTREOTIDE ACETATE
  4. SANDOSTATIN [Suspect]
     Active Substance: OCTREOTIDE ACETATE
     Indication: Gastrinoma malignant
     Dosage: 30 MG, Q4W
     Route: 030
  5. OCTREOTIDE [Concomitant]
     Active Substance: OCTREOTIDE
     Indication: Gastrinoma malignant
     Dosage: UNK, TID X 2 WEEKS
     Route: 058
     Dates: start: 20170602
  6. DULOXETINE [Concomitant]
     Active Substance: DULOXETINE
     Indication: Product used for unknown indication
     Dosage: 1 DOSAGE FORM, QD
     Route: 048
  7. BISOPROLOL [Concomitant]
     Active Substance: BISOPROLOL
     Indication: Product used for unknown indication
     Dosage: 1 DOSAGE FORM, QD
     Route: 048
  8. TAMSULOSIN [Concomitant]
     Active Substance: TAMSULOSIN
     Indication: Product used for unknown indication
     Dosage: 1 DOSAGE FORM, QD
     Route: 048
  9. SYNTHROID [Concomitant]
     Active Substance: LEVOTHYROXINE SODIUM
     Indication: Product used for unknown indication
     Dosage: 1 DOSAGE FORM, QD
     Route: 048

REACTIONS (16)
  - Suicidal ideation [Unknown]
  - Depression [Unknown]
  - Depressed level of consciousness [Unknown]
  - Haemoglobin decreased [Unknown]
  - Asthenia [Unknown]
  - Tremor [Unknown]
  - Blood pressure systolic increased [Unknown]
  - Body temperature decreased [Unknown]
  - Gout [Unknown]
  - Musculoskeletal discomfort [Unknown]
  - Blood pressure increased [Unknown]
  - Back injury [Unknown]
  - Listless [Unknown]
  - Heart rate decreased [Unknown]
  - Fatigue [Unknown]
  - Syringe issue [Unknown]

NARRATIVE: CASE EVENT DATE: 20170101
